FAERS Safety Report 8712480 (Version 3)
Quarter: 2012Q4

REPORT INFORMATION
  Report Type: 
  Country: CA (occurrence: CA)
  Receive Date: 20120808
  Receipt Date: 20120912
  Transmission Date: 20130627
  Serious: Yes (Disabling, Other)
  Sender: FDA-Public Use
  Company Number: PHHY2012CA067943

PATIENT
  Sex: Male

DRUGS (1)
  1. SANDOSTATIN LAR [Suspect]
     Indication: NEUROENDOCRINE TUMOUR
     Dosage: 30 mg, every 4 weeks
     Route: 030
     Dates: start: 20120517

REACTIONS (12)
  - Chest pain [Recovering/Resolving]
  - Dyspnoea [Recovering/Resolving]
  - Abdominal pain [Recovering/Resolving]
  - Palpitations [Unknown]
  - Hot flush [Unknown]
  - Diarrhoea [Unknown]
  - Blood pressure increased [Unknown]
  - Constipation [Unknown]
  - Flatulence [Unknown]
  - Eructation [Unknown]
  - Dysgeusia [None]
  - Gastrointestinal disorder [None]
